FAERS Safety Report 13527090 (Version 1)
Quarter: 2017Q2

REPORT INFORMATION
  Report Type: Spontaneous
  Country: US (occurrence: US)
  Receive Date: 20170509
  Receipt Date: 20170509
  Transmission Date: 20170830
  Serious: Yes (Life-Threatening)
  Sender: FDA-Public Use
  Company Number: None

PATIENT
  Age: 66 Year
  Sex: Male

DRUGS (1)
  1. WARFARIN [Suspect]
     Active Substance: WARFARIN
     Indication: ATRIAL FIBRILLATION
     Dosage: MG QD  PO
     Route: 048

REACTIONS (5)
  - Apnoea [None]
  - Haemorrhage intracranial [None]
  - Agitation [None]
  - Atrial fibrillation [None]
  - Seizure [None]

NARRATIVE: CASE EVENT DATE: 20170220
